FAERS Safety Report 8345747-X (Version None)
Quarter: 2012Q2

REPORT INFORMATION
  Report Type: 
  Country: None (occurrence: None)
  Receive Date: 20120508
  Receipt Date: 20120425
  Transmission Date: 20120825
  Serious: Yes (Hospitalization, Other)
  Sender: FDA-Public Use
  Company Number: US-ELI_LILLY_AND_COMPANY-US201201006864

PATIENT
  Sex: Female

DRUGS (24)
  1. FORTEO [Suspect]
     Indication: OSTEOPOROSIS
     Dosage: 20 UG, QD
     Route: 058
     Dates: start: 20111122
  2. PLAVIX [Concomitant]
     Dosage: 75 MG, QD
  3. NIASPAN [Concomitant]
     Dosage: 500 MG, QD
  4. HYZAAR [Concomitant]
  5. ASPIRIN [Concomitant]
  6. PROVENTIL                          /00139501/ [Concomitant]
     Dosage: UNK, PRN
  7. INSULIN [Concomitant]
  8. LYRICA [Concomitant]
     Dosage: 75 MG, BID
  9. HUMALOG [Concomitant]
     Dosage: 3 U, BID
  10. ACTOS [Concomitant]
     Dosage: 45 MG, QD
  11. FORTEO [Suspect]
     Dosage: 20 UG, QD
     Route: 058
  12. FORTEO [Suspect]
     Dosage: 20 UG, QD
     Route: 058
  13. IBUPROFEN TABLETS [Concomitant]
  14. FORTEO [Suspect]
     Dosage: 20 UG, QD
     Route: 058
  15. COREG [Concomitant]
     Dosage: 37.5 MG, QD
  16. DICLOFENAC [Concomitant]
  17. MULTI-VITAMIN [Concomitant]
  18. LOVAZA [Concomitant]
  19. CRESTOR [Concomitant]
     Dosage: 40 MG, QD
  20. ASPIRIN [Concomitant]
  21. FORTEO [Suspect]
     Dosage: 20 UG, QD
     Route: 058
  22. VICODIN [Concomitant]
  23. AMBIEN [Concomitant]
     Dosage: 5 MG, QD
  24. LISINOPRIL [Concomitant]
     Dosage: 5 MG, BID

REACTIONS (16)
  - LACRIMATION INCREASED [None]
  - BLOOD PRESSURE DECREASED [None]
  - CONFUSIONAL STATE [None]
  - INJECTION SITE HAEMATOMA [None]
  - MEMORY IMPAIRMENT [None]
  - RIB FRACTURE [None]
  - COUGH [None]
  - RHINORRHOEA [None]
  - SNEEZING [None]
  - GAIT DISTURBANCE [None]
  - SPEECH DISORDER [None]
  - VISION BLURRED [None]
  - OROPHARYNGEAL PAIN [None]
  - NASOPHARYNGITIS [None]
  - ISCHAEMIC STROKE [None]
  - DYSPHONIA [None]
